FAERS Safety Report 4275431-3 (Version None)
Quarter: 2004Q1

REPORT INFORMATION
  Report Type: 
  Country: None (occurrence: None)
  Receive Date: 20040116
  Receipt Date: 20040109
  Transmission Date: 20041129
  Serious: Yes (Death)
  Sender: FDA-Public Use
  Company Number: US-JNJFOC-20030803929

PATIENT
  Age: 68 Year
  Sex: Male

DRUGS (10)
  1. DURAGESIC [Suspect]
     Indication: PAIN
     Dosage: 25 UG/HR, 1 IN 72 HOUR, TRANSDERMAL
     Route: 062
     Dates: start: 20030813, end: 20030817
  2. ASPIRIN [Concomitant]
  3. BENEDRYL (DIPHENHYDRAMINE HYDROCHLORIDE) [Concomitant]
  4. FLOMAX [Concomitant]
  5. FAMVIR [Concomitant]
  6. LEXAPRO (ALL OTHER THERAPEUTIC PRODUCTS) [Concomitant]
  7. METAMUCIL-2 [Concomitant]
  8. NEPHOREX (ALL OTHER THERAPEUTIC PRODUCTS) [Concomitant]
  9. NPH INSULIN [Concomitant]
  10. FLONASE NASAL SPRAY (FLUTICASONE PROPIONATE) [Concomitant]

REACTIONS (6)
  - CARDIAC ARREST [None]
  - CEREBROVASCULAR ACCIDENT [None]
  - COMA [None]
  - HAEMATOCRIT DECREASED [None]
  - HAEMOGLOBIN DECREASED [None]
  - SCAN MYOCARDIAL PERFUSION ABNORMAL [None]
